FAERS Safety Report 8048194-3 (Version None)
Quarter: 2012Q1

REPORT INFORMATION
  Report Type: 
  Country: None (occurrence: None)
  Receive Date: 20120117
  Receipt Date: 20120112
  Transmission Date: 20120608
  Serious: Yes (Hospitalization, Other)
  Sender: FDA-Public Use
  Company Number: US-JNJFOC-20110500182

PATIENT
  Sex: Male

DRUGS (3)
  1. LEVAQUIN [Suspect]
     Indication: INFECTION
     Route: 048
  2. LEVAQUIN [Suspect]
     Route: 048
     Dates: start: 20090216, end: 20090221
  3. PREDNISONE [Suspect]
     Indication: INFLAMMATION
     Route: 048
     Dates: start: 20070321, end: 20070407

REACTIONS (2)
  - TENDON RUPTURE [None]
  - LIGAMENT RUPTURE [None]
